FAERS Safety Report 21119529 (Version 1)
Quarter: 2022Q3

REPORT INFORMATION
  Report Type: Spontaneous
  Country: US (occurrence: None)
  Receive Date: 20220721
  Receipt Date: 20220721
  Transmission Date: 20221027
  Serious: No
  Sender: FDA-Public Use
  Company Number: None

PATIENT
  Age: 77 Year
  Sex: Male
  Weight: 91 kg

DRUGS (1)
  1. REMDESIVIR [Suspect]
     Active Substance: REMDESIVIR
     Indication: COVID-19
     Dosage: FREQUENCY : ONCE;?
     Route: 042
     Dates: start: 20201222, end: 20201222

REACTIONS (3)
  - Hepatic enzyme increased [None]
  - Blood urea increased [None]
  - Blood creatinine increased [None]

NARRATIVE: CASE EVENT DATE: 20201222
